FAERS Safety Report 22184708 (Version 1)
Quarter: 2023Q2

REPORT INFORMATION
  Report Type: Spontaneous
  Country: US (occurrence: US)
  Receive Date: 20230407
  Receipt Date: 20230407
  Transmission Date: 20230721
  Serious: No
  Sender: FDA-Public Use
  Company Number: US-JNJFOC-20230374618

PATIENT
  Sex: Female

DRUGS (1)
  1. SPRAVATO [Suspect]
     Active Substance: ESKETAMINE
     Indication: Product used for unknown indication

REACTIONS (6)
  - Feeling drunk [Unknown]
  - Insomnia [Unknown]
  - Anxiety [Unknown]
  - Discomfort [Unknown]
  - Night sweats [Unknown]
  - Intentional product use issue [Unknown]
